FAERS Safety Report 8601525-5 (Version None)
Quarter: 2012Q3

REPORT INFORMATION
  Report Type: 
  Country: None (occurrence: None)
  Receive Date: 20120817
  Receipt Date: 20120808
  Transmission Date: 20120928
  Serious: Yes (Hospitalization)
  Sender: FDA-Public Use
  Company Number: NL-TEVA-353784ISR

PATIENT
  Sex: Male

DRUGS (11)
  1. ANGIOTENSIN CONVERTING ENZYME INHIBITOR [Concomitant]
  2. BETA-BLOCKER [Concomitant]
  3. PERINDOPRIL ERBUMINE [Suspect]
  4. METFORMIN HCL [Suspect]
     Indication: TYPE 2 DIABETES MELLITUS
     Dosage: 1500 MILLIGRAM DAILY;
  5. ORAL ANTICOAGULANTS [Concomitant]
  6. METOPROLOL TARTRATE [Suspect]
  7. STATIN [Concomitant]
  8. SAXAGLIPTIN [Suspect]
     Indication: TYPE 2 DIABETES MELLITUS
     Dates: start: 20110518
  9. ACETYLSALICYLIC ACID SRT [Concomitant]
     Dates: start: 20110816
  10. NEXIUM [Concomitant]
  11. CALCIUM ANTAGONIST [Concomitant]

REACTIONS (1)
  - HYPERTENSION [None]
